FAERS Safety Report 7774908-3 (Version None)
Quarter: 2011Q3

REPORT INFORMATION
  Report Type: 
  Country: None (occurrence: None)
  Receive Date: 20110921
  Receipt Date: 20110906
  Transmission Date: 20111222
  Serious: Yes (Other)
  Sender: FDA-Public Use
  Company Number: 2011MA013056

PATIENT
  Age: 49 Year
  Sex: Female

DRUGS (4)
  1. FLUDARABINE PHOSPHATE [Suspect]
     Indication: LANGERHANS' CELL HISTIOCYTOSIS
  2. CYCLOPHOSPHAMIDE [Suspect]
     Indication: LANGERHANS' CELL HISTIOCYTOSIS
  3. CLADRIBINE [Suspect]
     Indication: LANGERHANS' CELL HISTIOCYTOSIS
  4. VINBLASTINE SULFATE [Suspect]
     Indication: LANGERHANS' CELL HISTIOCYTOSIS

REACTIONS (7)
  - SKIN DISORDER [None]
  - PAIN [None]
  - SKIN FIBROSIS [None]
  - NO THERAPEUTIC RESPONSE [None]
  - NEUTROPENIA [None]
  - SKIN HYPERPIGMENTATION [None]
  - NEUROPATHY PERIPHERAL [None]
